FAERS Safety Report 7960437-0 (Version None)
Quarter: 2011Q4

REPORT INFORMATION
  Report Type: 
  Country: None (occurrence: None)
  Receive Date: 20111206
  Receipt Date: 20111128
  Transmission Date: 20120403
  Serious: Yes (Other)
  Sender: FDA-Public Use
  Company Number: US-ABBOTT-11P-163-0880180-00

PATIENT
  Age: 35 Year
  Sex: Male

DRUGS (14)
  1. ATIVAN [Concomitant]
     Indication: ANXIETY
  2. LORTAB [Concomitant]
     Indication: PRODUCT USED FOR UNKNOWN INDICATION
  3. PHENERGAN [Suspect]
     Indication: GASTROENTERITIS VIRAL
     Dates: start: 20111123
  4. IMURAN [Concomitant]
     Indication: PRODUCT USED FOR UNKNOWN INDICATION
  5. ONDANSETRON [Concomitant]
     Indication: NAUSEA
  6. DICYCLOMINE [Concomitant]
     Indication: MUSCLE SPASMS
     Dosage: 10MG OR 40MG DAILY
  7. NEXIUM [Concomitant]
     Indication: DYSPEPSIA
     Dosage: DAILY DOSE: 40MG
  8. CIPROFLOXACIN [Concomitant]
     Indication: PRODUCT USED FOR UNKNOWN INDICATION
  9. MULTI-VITAMIN [Concomitant]
     Indication: PRODUCT USED FOR UNKNOWN INDICATION
  10. HUMIRA [Suspect]
     Indication: CROHN'S DISEASE
     Dates: start: 20110930
  11. FLAGYL [Concomitant]
     Indication: PRODUCT USED FOR UNKNOWN INDICATION
  12. OXYCODONE HCL [Suspect]
     Indication: GASTROENTERITIS VIRAL
     Dosage: AS NEEDED EVERY 6 HOURS
     Dates: start: 20111123
  13. PREDNISONE TAB [Concomitant]
     Indication: PRODUCT USED FOR UNKNOWN INDICATION
     Dosage: DAILY DOSE: 10MG
  14. STOOL SOFTENER [Concomitant]
     Indication: PRODUCT USED FOR UNKNOWN INDICATION

REACTIONS (4)
  - COLITIS [None]
  - PAIN [None]
  - GASTROENTERITIS VIRAL [None]
  - SKIN WARM [None]
